FAERS Safety Report 23981087 (Version 1)
Quarter: 2024Q2

REPORT INFORMATION
  Report Type: Spontaneous
  Country: US (occurrence: None)
  Receive Date: 20240614
  Receipt Date: 20240614
  Transmission Date: 20240716
  Serious: Yes (Hospitalization)
  Sender: FDA-Public Use
  Company Number: None

PATIENT
  Age: 33 Year
  Sex: Female
  Weight: 109 kg

DRUGS (10)
  1. COSENTYX [Suspect]
     Active Substance: SECUKINUMAB
     Indication: Ankylosing spondylitis
     Dosage: FREQUENCY : MONTHLY;?
     Route: 058
     Dates: start: 20221121
  2. Levofloxacin  750mg [Concomitant]
  3. dexamethasone 1mg [Concomitant]
  4. SULFASALAZINE [Concomitant]
     Active Substance: SULFASALAZINE
  5. TYLENOL [Concomitant]
     Active Substance: ACETAMINOPHEN
  6. vraylar 1.5mg [Concomitant]
  7. propranolol ER 60mg [Concomitant]
  8. DEXTROAMPHET SACCHARAT, AMPHET ASPARTATE, DEXTROAMPHET SULFATE AND AMP [Concomitant]
     Active Substance: AMPHETAMINE ASPARTATE\AMPHETAMINE ASPARTATE MONOHYDRATE\AMPHETAMINE SULFATE\DEXTROAMPHETAMINE SACCHA
  9. DEXLANSOPRAZOLE [Concomitant]
     Active Substance: DEXLANSOPRAZOLE
  10. VENLAFAXINE HYDROCHLORIDE [Concomitant]
     Active Substance: VENLAFAXINE HYDROCHLORIDE

REACTIONS (3)
  - Parainfluenzae virus infection [None]
  - Therapy interrupted [None]
  - Parainfluenzae virus infection [None]

NARRATIVE: CASE EVENT DATE: 20240613
